FAERS Safety Report 20809361 (Version 1)
Quarter: 2022Q2

REPORT INFORMATION
  Report Type: Spontaneous
  Country: US (occurrence: None)
  Receive Date: 20220509
  Receipt Date: 20220509
  Transmission Date: 20220720
  Serious: No
  Sender: FDA-Public Use
  Company Number: None

PATIENT
  Age: 53 Year
  Sex: Male

DRUGS (1)
  1. KESIMPTA [Suspect]
     Active Substance: OFATUMUMAB
     Indication: Multiple sclerosis
     Dosage: FREQUENCY : AS DIRECTED;?INJECT 20MG SUBCUTANEOUSLY AT WEEK 0, 1 AND 2 THEN 20MG M STARTING AT WEEK
     Route: 058
     Dates: start: 202111

REACTIONS (2)
  - COVID-19 [None]
  - Multiple sclerosis relapse [None]
